FAERS Safety Report 5244346-6 (Version None)
Quarter: 2007Q1

REPORT INFORMATION
  Report Type: 
  Country: None (occurrence: None)
  Receive Date: 20070222
  Receipt Date: 20070212
  Transmission Date: 20070707
  Serious: Yes (Hospitalization)
  Sender: FDA-Public Use
  Company Number: FR-PFIZER INC-2007011782

PATIENT
  Age: 47 Year
  Sex: Female

DRUGS (6)
  1. MEDROL [Suspect]
     Indication: BRONCHITIS
     Route: 048
     Dates: start: 20061218, end: 20061223
  2. SYMBICORT [Suspect]
     Indication: BRONCHITIS
     Dosage: DAILY DOSE:800MG-FREQ:INTERVAL: EVERYDAY
  3. CLARITHROMYCIN [Suspect]
     Indication: BRONCHITIS
     Dosage: TEXT:1 G-FREQ:INTERVAL: EVERYDAY
     Route: 048
     Dates: start: 20061218, end: 20061225
  4. CETIRIZINE HCL [Suspect]
     Route: 048
  5. PARACETAMOL [Concomitant]
  6. TIOTROPIUM [Concomitant]

REACTIONS (1)
  - PERIPHERAL ISCHAEMIA [None]
